FAERS Safety Report 21439527 (Version 1)
Quarter: 2022Q4

REPORT INFORMATION
  Report Type: Spontaneous
  Country: US (occurrence: None)
  Receive Date: 20221007
  Receipt Date: 20221007
  Transmission Date: 20230113
  Serious: Yes (Life-Threatening, Hospitalization, Other)
  Sender: FDA-Public Use
  Company Number: None

PATIENT
  Age: 59 Year
  Sex: Male
  Weight: 81.6 kg

DRUGS (1)
  1. TNKASE [Suspect]
     Active Substance: TENECTEPLASE

REACTIONS (7)
  - Hypoaesthesia [None]
  - Hypoaesthesia [None]
  - Ataxia [None]
  - Cerebral artery stenosis [None]
  - Swollen tongue [None]
  - Haemorrhage [None]
  - Dysphagia [None]

NARRATIVE: CASE EVENT DATE: 20220921
